FAERS Safety Report 6936111-6 (Version None)
Quarter: 2010Q3

REPORT INFORMATION
  Report Type: 
  Country: None (occurrence: None)
  Receive Date: 20100817
  Receipt Date: 20100803
  Transmission Date: 20110219
  Serious: Yes (Hospitalization)
  Sender: FDA-Public Use
  Company Number: UTC-001308

PATIENT
  Age: 18 Year
  Sex: Female

DRUGS (1)
  1. REMODULIN [Suspect]
     Dosage: PUMP RATE .016
     Dates: start: 20100720

REACTIONS (7)
  - ASTHENIA [None]
  - FATIGUE [None]
  - GASTROINTESTINAL HAEMORRHAGE [None]
  - HEART RATE IRREGULAR [None]
  - HYPERSOMNIA [None]
  - MALAISE [None]
  - PRESYNCOPE [None]
